FAERS Safety Report 15592637 (Version 2)
Quarter: 2025Q3

REPORT INFORMATION
  Report Type: Spontaneous
  Country: EU (occurrence: EU)
  Receive Date: 20181107
  Receipt Date: 20250703
  Transmission Date: 20251021
  Serious: Yes (Death, Hospitalization, Other)
  Sender: NOVARTIS
  Company Number: PHHY2018FR148608

PATIENT
  Sex: Male
  Weight: 84 kg

DRUGS (7)
  1. NEORAL [Suspect]
     Active Substance: CYCLOSPORINE
     Indication: Rheumatoid arthritis
     Dosage: 280 MG, QD (140 MG, BID,NO DRUG DISCONTINUATION)
     Route: 048
     Dates: start: 20051110
  2. PREDNISONE [Suspect]
     Active Substance: PREDNISONE
     Indication: Rheumatoid arthritis
     Dosage: 20 MG, QD (,NO DRUG DISCONTINUATION)
     Route: 048
     Dates: start: 2004
  3. MABTHERA [Suspect]
     Active Substance: RITUXIMAB
     Indication: Rheumatoid arthritis
     Route: 042
     Dates: start: 20070206, end: 20070206
  4. NOVATREX (AZITHROMYCIN) [Suspect]
     Active Substance: AZITHROMYCIN DIHYDRATE
     Indication: Rheumatoid arthritis
     Dosage: 10 MG, QW
     Route: 048
     Dates: start: 20060120, end: 20070127
  5. MABTHERA [Suspect]
     Active Substance: RITUXIMAB
     Indication: Product used for unknown indication
     Route: 042
     Dates: start: 20070220, end: 20070220
  6. GLUCOPHAGE [Concomitant]
     Active Substance: METFORMIN HYDROCHLORIDE
     Indication: Product used for unknown indication
     Dosage: UNK, QD (850 UNK, TID)
     Route: 065
  7. RAMIPRIL [Concomitant]
     Active Substance: RAMIPRIL
     Indication: Product used for unknown indication
     Route: 065

REACTIONS (5)
  - Metastatic carcinoma of the bladder [Fatal]
  - Bacterial pyelonephritis [Fatal]
  - Bladder cancer [Recovered/Resolved with Sequelae]
  - Bladder cancer recurrent [Not Recovered/Not Resolved]
  - Escherichia pyelonephritis [Recovered/Resolved]

NARRATIVE: CASE EVENT DATE: 20070306
